FAERS Safety Report 9981304 (Version 2)
Quarter: 2014Q1

REPORT INFORMATION
  Report Type: Spontaneous
  Country: US (occurrence: None)
  Receive Date: 20140305
  Receipt Date: 20140305
  Transmission Date: 20141002
  Serious: Yes (Hospitalization, Other)
  Sender: FDA-Public Use
  Company Number: ADR-2014-00328

PATIENT
  Age: 53 Year
  Sex: Female

DRUGS (4)
  1. BACLOFEN [Suspect]
     Indication: PAIN
  2. DILAUDID [Suspect]
  3. CLONIDINE [Suspect]
  4. BUPIVACAINE [Suspect]

REACTIONS (6)
  - Withdrawal syndrome [None]
  - Pain [None]
  - Medical device complication [None]
  - Hyperhidrosis [None]
  - Complex regional pain syndrome [None]
  - Condition aggravated [None]
